FAERS Safety Report 7202072-8 (Version None)
Quarter: 2010Q4

REPORT INFORMATION
  Report Type: 
  Country: None (occurrence: None)
  Receive Date: 20101216
  Receipt Date: 20101210
  Transmission Date: 20110411
  Serious: Yes (Death)
  Sender: FDA-Public Use
  Company Number: DSA_44340_2010

PATIENT
  Sex: Female

DRUGS (14)
  1. XENAZINE [Suspect]
     Indication: PRODUCT USED FOR UNKNOWN INDICATION
     Dosage: (25 MG TID ORAL)
     Route: 048
     Dates: start: 20090501
  2. PRILOSEC [Concomitant]
  3. SIMVASTATIN [Concomitant]
  4. VITAMIN TAB [Concomitant]
  5. VITAMIN B1 TAB [Concomitant]
  6. ASCORBIC ACID [Concomitant]
  7. VITAMIN A, PLAIN [Concomitant]
  8. ZYPREXA [Concomitant]
  9. DULCOLAX [Concomitant]
  10. ATARAX [Concomitant]
  11. IBUPROFEN [Concomitant]
  12. SYNTHROID [Concomitant]
  13. RESTORIL /00393701 [Concomitant]
  14. REMERON [Concomitant]

REACTIONS (1)
  - NO THERAPEUTIC RESPONSE [None]
